FAERS Safety Report 6959416-1 (Version None)
Quarter: 2010Q3

REPORT INFORMATION
  Report Type: 
  Country: None (occurrence: None)
  Receive Date: 20100831
  Receipt Date: 20100831
  Transmission Date: 20110219
  Serious: Yes (Other)
  Sender: FDA-Public Use
  Company Number: None

PATIENT
  Sex: Female
  Weight: 82.1011 kg

DRUGS (1)
  1. RECLIPSEN 0.15MG/30 MCG [Suspect]
     Indication: ENDOMETRIOSIS
     Dosage: 1 NOQD ORAL
     Route: 048

REACTIONS (4)
  - HAEMORRHAGE [None]
  - MUSCLE SPASMS [None]
  - PELVIC PAIN [None]
  - PRODUCT SUBSTITUTION ISSUE [None]
